APPROVED DRUG PRODUCT: HYDROPANE
Active Ingredient: HOMATROPINE METHYLBROMIDE; HYDROCODONE BITARTRATE
Strength: 1.5MG/5ML;5MG/5ML
Dosage Form/Route: SYRUP;ORAL
Application: A088066 | Product #001
Applicant: HALSEY DRUG CO INC
Approved: Jun 28, 1985 | RLD: No | RS: No | Type: DISCN